FAERS Safety Report 7321333-5 (Version None)
Quarter: 2011Q1

REPORT INFORMATION
  Report Type: 
  Country: None (occurrence: None)
  Receive Date: 20110228
  Receipt Date: 20100222
  Transmission Date: 20110831
  Serious: Yes (Hospitalization)
  Sender: FDA-Public Use
  Company Number: US-PFIZER INC-2010026547

PATIENT
  Sex: Female
  Weight: 82.993 kg

DRUGS (3)
  1. ESKALITH [Suspect]
     Indication: BIPOLAR DISORDER
  2. LITHIUM [Suspect]
     Indication: BIPOLAR DISORDER
     Dosage: 900 MG, DAILY
  3. GEODON [Suspect]
     Indication: BIPOLAR DISORDER
     Dosage: 160 MG DAILY

REACTIONS (8)
  - DRUG LEVEL BELOW THERAPEUTIC [None]
  - INSOMNIA [None]
  - DIZZINESS [None]
  - TREMOR [None]
  - ANXIETY [None]
  - DEPRESSION [None]
  - MANIA [None]
  - DRUG INEFFECTIVE [None]
